FAERS Safety Report 6251628-8 (Version None)
Quarter: 2009Q2

REPORT INFORMATION
  Report Type: 
  Country: None (occurrence: None)
  Receive Date: 20090630
  Receipt Date: 20090624
  Transmission Date: 20091009
  Serious: Yes (Hospitalization, Other)
  Sender: FDA-Public Use
  Company Number: US-ABBOTT-08P-163-0451414-00

PATIENT
  Sex: Male
  Weight: 65.83 kg

DRUGS (1)
  1. HUMIRA [Suspect]
     Indication: CROHN'S DISEASE
     Route: 058
     Dates: start: 20080101

REACTIONS (13)
  - ABSCESS [None]
  - DRY SKIN [None]
  - HERPES ZOSTER [None]
  - INJECTION SITE HAEMATOMA [None]
  - INJECTION SITE HAEMORRHAGE [None]
  - INJECTION SITE IRRITATION [None]
  - PRECANCEROUS SKIN LESION [None]
  - RASH [None]
  - RASH PRURITIC [None]
  - STAPHYLOCOCCAL INFECTION [None]
  - VARICELLA [None]
  - VASCULAR INJURY [None]
  - VOMITING [None]
